FAERS Safety Report 5673316-9 (Version None)
Quarter: 2008Q1

REPORT INFORMATION
  Report Type: 
  Country: None (occurrence: None)
  Receive Date: 20080317
  Receipt Date: 20080306
  Transmission Date: 20080703
  Serious: Yes (Life-Threatening)
  Sender: FDA-Public Use
  Company Number: 2008AL001468

PATIENT
  Age: 8 Year
  Sex: Female

DRUGS (3)
  1. HYDROCORTISONE CREAM [Suspect]
     Indication: HYPOPITUITARISM
     Dosage: 5 MG;QD
     Route: 061
     Dates: start: 19991018
  2. LEVOTHYROXINE SODIUM [Concomitant]
  3. SOMATROPIN [Concomitant]

REACTIONS (1)
  - ASTROCYTOMA [None]
